FAERS Safety Report 7260382 (Version 2)
Quarter: 2014Q1

REPORT INFORMATION
  Report Type: Spontaneous
  Country: US (occurrence: None)
  Receive Date: 20100119
  Receipt Date: 20140114
  Transmission Date: 20141002
  Serious: Yes (Other)
  Sender: FDA-Public Use
  Company Number: 2010S1000140

PATIENT
  Age: 60 Year
  Sex: Female

DRUGS (6)
  1. FLEET PHOSPHO-SODA ORAL SALINE LAXATIVE, GINGER-LEMON FLAVOR [Suspect]
     Indication: COLONOSCOPY
     Dosage: 90 ML, 2 IN 24 HOURS, ORAL
     Route: 048
     Dates: start: 20070312, end: 20070313
  2. SYNTHROID (LEVOTHYROXINE SODIUM) [Concomitant]
  3. EVISTA [Concomitant]
  4. DIOVAN (VALSARTAN) [Concomitant]
  5. NEXIUM (ESOMEPRAZOLE MAGNESIUM) [Concomitant]
  6. CALCIUM (CALCIUM) [Concomitant]

REACTIONS (2)
  - Renal failure chronic [None]
  - Renal failure acute [None]
